FAERS Safety Report 9925837 (Version 3)
Quarter: 2014Q1

REPORT INFORMATION
  Report Type: Spontaneous
  Country: JP (occurrence: JP)
  Receive Date: 20140226
  Receipt Date: 20140319
  Transmission Date: 20141002
  Serious: Yes (Other)
  Sender: FDA-Public Use
  Company Number: JP-UCBSA-113304

PATIENT
  Age: 14 Year
  Sex: Female

DRUGS (4)
  1. E KEPPRA [Suspect]
     Indication: EPILEPSY
     Route: 048
  2. ZONISAMIDE [Suspect]
     Indication: EPILEPSY
     Route: 048
  3. LAMOTRIGINE [Suspect]
     Indication: EPILEPSY
     Route: 048
  4. CLOBAZAM [Suspect]
     Indication: EPILEPSY
     Route: 048

REACTIONS (2)
  - Somnolence [Unknown]
  - Status epilepticus [Unknown]
